FAERS Safety Report 18788917 (Version 1)
Quarter: 2021Q1

REPORT INFORMATION
  Report Type: Other
  Country: US (occurrence: US)
  Receive Date: 20210125
  Receipt Date: 20210125
  Transmission Date: 20210419
  Serious: No
  Sender: FDA-Public Use
  Company Number: US-ACORDA-ACO_165721_2020

PATIENT
  Sex: Female

DRUGS (3)
  1. AMPYRA [Suspect]
     Active Substance: DALFAMPRIDINE
     Indication: BALANCE DISORDER
  2. TECFIDERA [Suspect]
     Active Substance: DIMETHYL FUMARATE
     Indication: MULTIPLE SCLEROSIS
     Dosage: UNK, BID
     Route: 048
     Dates: start: 20190711
  3. AMPYRA [Suspect]
     Active Substance: DALFAMPRIDINE
     Indication: GAIT DISTURBANCE
     Dosage: UNK
     Route: 065

REACTIONS (1)
  - Off label use [Not Recovered/Not Resolved]
